FAERS Safety Report 16692207 (Version 1)
Quarter: 2019Q3

REPORT INFORMATION
  Report Type: Spontaneous
  Country: US (occurrence: US)
  Receive Date: 20190812
  Receipt Date: 20190812
  Transmission Date: 20191004
  Serious: Yes (Other)
  Sender: FDA-Public Use
  Company Number: PHHY2019US180283

PATIENT
  Age: 32 Year
  Sex: Female

DRUGS (2)
  1. METHYLPREDNISOLONE. [Suspect]
     Active Substance: METHYLPREDNISOLONE
     Indication: IDIOPATHIC INTRACRANIAL HYPERTENSION
     Dosage: 250 MG, Q6H
     Route: 042
  2. ACETAZOLAMIDE. [Suspect]
     Active Substance: ACETAZOLAMIDE
     Indication: IDIOPATHIC INTRACRANIAL HYPERTENSION
     Dosage: 500 MG, BID
     Route: 065

REACTIONS (16)
  - Headache [Recovered/Resolved]
  - Nausea [Unknown]
  - Vomiting [Unknown]
  - Brain oedema [Unknown]
  - Subarachnoid haemorrhage [Unknown]
  - Cerebrovascular accident [Unknown]
  - Speech disorder [Unknown]
  - Lethargy [Unknown]
  - Malaise [Unknown]
  - Diplopia [Unknown]
  - Hypoaesthesia [Unknown]
  - Product use in unapproved indication [Unknown]
  - Papilloedema [Recovered/Resolved]
  - Optic atrophy [Not Recovered/Not Resolved]
  - Intracranial venous sinus thrombosis [Unknown]
  - Blindness transient [Recovering/Resolving]
